FAERS Safety Report 21358554 (Version 2)
Quarter: 2022Q4

REPORT INFORMATION
  Report Type: Report from Study
  Country: US (occurrence: US)
  Receive Date: 20220921
  Receipt Date: 20221007
  Transmission Date: 20230112
  Serious: No
  Sender: FDA-Public Use
  Company Number: US-ETON PHARMACEUTICALS, INC-2022ETO000228

PATIENT

DRUGS (6)
  1. ALKINDI SPRINKLE [Suspect]
     Active Substance: HYDROCORTISONE
     Indication: Adrenocortical insufficiency acute
     Dosage: 0.5 MILLIGRAM,  4MG DAILY IN DIVIDED DOSES BID AS 2.5MG IN THE MORNING, AND 1.5MG IN THE EVENING
     Route: 048
     Dates: start: 20220901
  2. NYSTATIN [Concomitant]
     Active Substance: NYSTATIN
     Indication: Product used for unknown indication
     Dosage: 3 MILLILITER, QID
  3. CEFDINIR [Concomitant]
     Active Substance: CEFDINIR
     Indication: Product used for unknown indication
     Dosage: 3 MILLILITER, QD
  4. ZYRTEC                             /00884302/ [Concomitant]
     Indication: Product used for unknown indication
     Dosage: 5MG/5ML AS NEEDED
  5. POLY VITAMIN WITH IRON [Concomitant]
     Indication: Hypovitaminosis
     Dosage: 10MG/ML AT BEDTIME
     Route: 048
  6. LEVALBUTEROL TARTRATE [Concomitant]
     Active Substance: LEVALBUTEROL TARTRATE
     Indication: Asthma
     Dosage: 45 MICROGRAM, PRN
     Route: 055

REACTIONS (8)
  - Incorrect dose administered [Unknown]
  - Product use complaint [Unknown]
  - Nasal congestion [Unknown]
  - Decreased appetite [Unknown]
  - Pharyngeal erythema [Unknown]
  - Dysphonia [Unknown]
  - Cough [Unknown]
  - Pyrexia [Unknown]

NARRATIVE: CASE EVENT DATE: 20220101
